FAERS Safety Report 21418911 (Version 8)
Quarter: 2024Q4

REPORT INFORMATION
  Report Type: Report from Study
  Country: BE (occurrence: BE)
  Receive Date: 20221006
  Receipt Date: 20241001
  Transmission Date: 20250115
  Serious: Yes (Hospitalization)
  Sender: ABBVIE
  Company Number: BE-ABBVIE-22K-013-4529798-00

PATIENT
  Age: 32 Year
  Sex: Female
  Weight: 92 kg

DRUGS (3)
  1. UPADACITINIB [Suspect]
     Active Substance: UPADACITINIB
     Indication: Axial spondyloarthritis
     Route: 048
     Dates: start: 20220627
  2. ETORICOXIB [Concomitant]
     Active Substance: ETORICOXIB
     Indication: Axial spondyloarthritis
     Route: 048
     Dates: start: 202006
  3. NITROFURANTOIN [Concomitant]
     Active Substance: NITROFURANTOIN
     Indication: Urinary tract infection
     Route: 048
     Dates: start: 20221004, end: 20221014

REACTIONS (8)
  - Hysterectomy [Recovered/Resolved]
  - Aphthous ulcer [Recovered/Resolved]
  - Menstruation irregular [Recovered/Resolved]
  - Cystitis [Recovered/Resolved with Sequelae]
  - Urinary tract infection [Recovered/Resolved with Sequelae]
  - Pyelonephritis [Recovered/Resolved with Sequelae]
  - Urinary retention [Recovered/Resolved with Sequelae]
  - Cyst [Recovered/Resolved]

NARRATIVE: CASE EVENT DATE: 20220711
